FAERS Safety Report 15014982 (Version 5)
Quarter: 2018Q4

REPORT INFORMATION
  Report Type: Report from Study
  Country: US (occurrence: US)
  Receive Date: 20180615
  Receipt Date: 20181214
  Transmission Date: 20190204
  Serious: Yes (Other)
  Sender: FDA-Public Use
  Company Number: US-TESARO, INC-US-2018TSO02498

PATIENT
  Sex: Female
  Weight: 68 kg

DRUGS (2)
  1. ZEJULA [Suspect]
     Active Substance: NIRAPARIB
     Dosage: 200 MG, DAILY 8:30 PM WITHOUT FOOD
     Route: 048
     Dates: start: 20180629
  2. ZEJULA [Suspect]
     Active Substance: NIRAPARIB
     Indication: OVARIAN CANCER
     Dosage: 300 MG, QD
     Route: 048
     Dates: start: 20180406, end: 20180517

REACTIONS (11)
  - Dyspnoea exertional [Not Recovered/Not Resolved]
  - Haemoptysis [Recovering/Resolving]
  - Headache [Not Recovered/Not Resolved]
  - Bronchitis [Recovering/Resolving]
  - Decreased appetite [Recovered/Resolved]
  - Dehydration [Recovered/Resolved]
  - Dysgeusia [Recovered/Resolved]
  - Weight decreased [Not Recovered/Not Resolved]
  - Nausea [Recovered/Resolved]
  - Dizziness postural [Recovering/Resolving]
  - Dyspnoea [Unknown]

NARRATIVE: CASE EVENT DATE: 2018
